FAERS Safety Report 21749352 (Version 2)
Quarter: 2023Q1

REPORT INFORMATION
  Report Type: Report from Study
  Country: DE (occurrence: DE)
  Receive Date: 20221219
  Receipt Date: 20230118
  Transmission Date: 20230418
  Serious: Yes (Other)
  Sender: FDA-Public Use
  Company Number: DE-ROCHE-3235262

PATIENT
  Age: 68 Year
  Sex: Female
  Weight: 78 kg

DRUGS (2)
  1. BEVACIZUMAB [Suspect]
     Active Substance: BEVACIZUMAB
     Indication: Breast cancer
     Dosage: 1170 MG (DATE OF LAST APPLICATION PRIOR TO EVENT: 15/APR/2021 AND LAST DOSE PRIOR TO EVENT 1170 MG)
     Route: 065
     Dates: start: 20210415
  2. CAPECITABINE [Suspect]
     Active Substance: CAPECITABINE
     Indication: Breast cancer
     Dosage: 2000 MG (DATE OF LAST APPLICATION PRIOR TO EVENT 20/APR/2021 AND LAST DOSE PRIOR TO EVENT 2000 MG)
     Route: 048
     Dates: start: 20210420

REACTIONS (1)
  - Cerebral haemorrhage [Recovered/Resolved with Sequelae]

NARRATIVE: CASE EVENT DATE: 20210421
